FAERS Safety Report 18945901 (Version 1)
Quarter: 2021Q1

REPORT INFORMATION
  Report Type: Report from Study
  Country: CA (occurrence: CA)
  Receive Date: 20210226
  Receipt Date: 20210226
  Transmission Date: 20210420
  Serious: Yes (Other)
  Sender: FDA-Public Use
  Company Number: NVSC2021CA042586

PATIENT
  Sex: Male

DRUGS (15)
  1. MOMETASONE FUROATE. [Suspect]
     Active Substance: MOMETASONE FUROATE
     Indication: PRODUCT USED FOR UNKNOWN INDICATION
     Dosage: 50 MCG VAP, TAKE 2 VAPORIZATIONS IN EACH NOSTRIL TWICE PER DAY MORNING AND NIGHT
     Route: 045
  2. VENLAFAXINE HYDROCHLORIDE. [Suspect]
     Active Substance: VENLAFAXINE HYDROCHLORIDE
     Indication: PRODUCT USED FOR UNKNOWN INDICATION
     Dosage: 1 TABLET ONCE PER DAY AT MEALTIME
     Route: 065
  3. OLANZAPINE. [Suspect]
     Active Substance: OLANZAPINE
     Indication: PRODUCT USED FOR UNKNOWN INDICATION
     Dosage: 1 TABLET ONCE PER DAY AT BEDTIME
     Route: 065
  4. CANDESARTAN CILEXETIL. [Suspect]
     Active Substance: CANDESARTAN CILEXETIL
     Indication: PRODUCT USED FOR UNKNOWN INDICATION
     Dosage: 16 MG TABLET, TAKE 1 TABLET ONCE DAILY IN THE MORNING
     Route: 065
  5. ZOPICLONE [Suspect]
     Active Substance: ZOPICLONE
     Indication: PRODUCT USED FOR UNKNOWN INDICATION
     Dosage: TAKE 1 OR 2 TABLETS ONCE PER DAY AT BEDTIME IF NEEDED *MAXIMUM RECOMMENDED 1 TABLET PER DAY PRN
     Route: 065
  6. EFINACONAZOLE [Concomitant]
     Active Substance: EFINACONAZOLE
     Indication: PRODUCT USED FOR UNKNOWN INDICATION
     Dosage: APPLY 2 DROPS ONCE PER DAY ON THE BIG TOE
     Route: 061
  7. PRAVASTATIN SODIUM. [Suspect]
     Active Substance: PRAVASTATIN SODIUM
     Indication: PRODUCT USED FOR UNKNOWN INDICATION
     Dosage: TAKE 1 TABLET ONCE PER DAY AT BEDTIME
     Route: 065
  8. SALBUMOL [Concomitant]
     Active Substance: ALBUTEROL SULFATE
     Indication: PRODUCT USED FOR UNKNOWN INDICATION
     Dosage: TAKE 2 INHALATIONS 4 TIMES PER DAY EVERY 4 ? 6 HOURS AS NEEDED PRN
     Route: 055
  9. QUETIAPINE FUMARATE. [Suspect]
     Active Substance: QUETIAPINE FUMARATE
     Indication: PRODUCT USED FOR UNKNOWN INDICATION
     Dosage: 100MG, 1 TABLET ONCE A DAY AT BEDTIME
     Route: 065
  10. QUETIAPINE FUMARATE. [Suspect]
     Active Substance: QUETIAPINE FUMARATE
     Dosage: 25MG TABLET, 1 TABLET TWICE PER DAY MORNING AND NIGHT REGULARLY
     Route: 065
  11. SILDENAFIL. [Concomitant]
     Active Substance: SILDENAFIL
     Indication: PRODUCT USED FOR UNKNOWN INDICATION
     Dosage: TAKE 1/2 TABLET 1 HOUR BEFORE SEXUAL RELATIONS
     Route: 065
  12. VITAMIN D3 [Concomitant]
     Active Substance: CHOLECALCIFEROL
     Indication: PRODUCT USED FOR UNKNOWN INDICATION
     Dosage: TAKE 1 TABLET ONCE PER WEEK SAME DAY EACH WEEK
     Route: 065
  13. INTERFERON BETA?1A [Concomitant]
     Active Substance: INTERFERON BETA-1A
     Indication: PRODUCT USED FOR UNKNOWN INDICATION
     Dosage: SYRINGE (REBIF 22MCG/0.5ML INJ. SYRINGE), SUBCUTANEOUS INJECTOR
     Route: 058
  14. SALMETEROL/FLUTICASONPROPIONAAT [Concomitant]
     Active Substance: FLUTICASONE PROPIONATE\SALMETEROL XINAFOATE
     Indication: PRODUCT USED FOR UNKNOWN INDICATION
     Dosage: (ADVAIR 25+125MCG INHALER), 2 INHALATIONS TWICE PER DAY MORNING AND NIGHT, RINSE MOUTH AFTER EACH US
     Route: 055
  15. TERBINAFINE. [Concomitant]
     Active Substance: TERBINAFINE
     Indication: PRODUCT USED FOR UNKNOWN INDICATION
     Dosage: 1% VAPORIZER, APPLY ON THE FEET ONCE PER DAY AS NEEDED PRN
     Route: 061

REACTIONS (2)
  - Skin lesion [Unknown]
  - Disability assessment scale [Unknown]
